FAERS Safety Report 19959095 (Version 1)
Quarter: 2021Q4

REPORT INFORMATION
  Report Type: Report from Study
  Country: US (occurrence: US)
  Receive Date: 20211015
  Receipt Date: 20211015
  Transmission Date: 20220304
  Serious: Yes (Death)
  Sender: FDA-Public Use
  Company Number: US-JNJFOC-20211009865

PATIENT
  Age: 61 Year
  Sex: Female

DRUGS (3)
  1. SPRAVATO [Suspect]
     Active Substance: ESKETAMINE
     Indication: Depression
     Dates: start: 20190719, end: 20210801
  2. SPRAVATO [Suspect]
     Active Substance: ESKETAMINE
     Dates: start: 20190806, end: 20210712
  3. SPRAVATO [Suspect]
     Active Substance: ESKETAMINE
     Dates: start: 20210716, end: 20210716

REACTIONS (1)
  - Death [Fatal]
